FAERS Safety Report 9026148 (Version 1)
Quarter: 2013Q1

REPORT INFORMATION
  Report Type: Spontaneous
  Country: US (occurrence: US)
  Receive Date: 20130123
  Receipt Date: 20130123
  Transmission Date: 20140127
  Serious: No
  Sender: FDA-Public Use
  Company Number: US-BAYER-2013-004230

PATIENT
  Sex: Female

DRUGS (5)
  1. BETASERON [Suspect]
     Dosage: 3 MG, UNK
  2. BETASERON [Suspect]
     Dosage: 1 ML, QOD
     Route: 058
  3. IRBESARTAN [Concomitant]
     Dosage: 75 MG, UNK
  4. CALCIUM [Concomitant]
     Dosage: 500 DF, UNK
  5. TYLENOL [PARACETAMOL] [Concomitant]
     Dosage: 325 MG, UNK

REACTIONS (4)
  - Gait disturbance [Unknown]
  - Influenza like illness [Unknown]
  - Limb discomfort [Unknown]
  - Fatigue [Unknown]
